FAERS Safety Report 9122344 (Version 1)
Quarter: 2013Q1

REPORT INFORMATION
  Report Type: Spontaneous
  Country: JP (occurrence: JP)
  Receive Date: 20130114
  Receipt Date: 20130114
  Transmission Date: 20140127
  Serious: Yes (Other)
  Sender: FDA-Public Use
  Company Number: PHHY2013JP002774

PATIENT
  Age: 41 Year
  Sex: Male

DRUGS (9)
  1. TEGRETOL [Suspect]
     Indication: BIPOLAR I DISORDER
     Dosage: 1200 MG, DAILY
     Route: 048
  2. TEGRETOL [Suspect]
     Dosage: 200 MG, DAILY
     Route: 048
  3. LITHIUM CARBONATE [Concomitant]
     Dosage: 1200 MG,DAILY
     Route: 048
  4. LITHIUM CARBONATE [Concomitant]
     Dosage: 100 MG, DAILY
     Route: 048
  5. WYPAX [Concomitant]
     Dosage: UNK UKN, UNK
     Route: 048
  6. MEILAX [Concomitant]
     Dosage: UNK UKN, UNK
     Route: 048
  7. DEPAS [Concomitant]
     Dosage: UNK UKN, UNK
     Route: 048
  8. CONTOMIN [Concomitant]
     Dosage: 400 MG,DAILY
     Route: 048
  9. TOLEDOMIN [Concomitant]
     Dosage: 750 MG, DAILY
     Route: 048

REACTIONS (7)
  - Cardiac hypertrophy [Unknown]
  - Cardiac disorder [Unknown]
  - Myocardial infarction [Unknown]
  - Angina pectoris [Unknown]
  - Dry skin [Unknown]
  - Sedation [Unknown]
  - Gamma-glutamyltransferase increased [Unknown]
